FAERS Safety Report 5764872-0 (Version None)
Quarter: 2008Q2

REPORT INFORMATION
  Report Type: 
  Country: None (occurrence: None)
  Receive Date: 20080602
  Receipt Date: 20080319
  Transmission Date: 20081010
  Serious: Yes (Life-Threatening)
  Sender: FDA-Public Use
  Company Number: WAES 0803USA03340

PATIENT

DRUGS (3)
  1. EMEND [Suspect]
     Indication: PROPHYLAXIS OF NAUSEA AND VOMITING
     Dosage: 125 MG/1X/PO ; 80 MG/1X/PO ; 80 MG/1X/PO
     Route: 048
  2. CISPLATIN [Suspect]
  3. ETOPOSIDE [Concomitant]

REACTIONS (1)
  - NEUTROPENIA [None]
